FAERS Safety Report 18046593 (Version 2)
Quarter: 2021Q2

REPORT INFORMATION
  Report Type: Spontaneous
  Country: CA (occurrence: CA)
  Receive Date: 20200720
  Receipt Date: 20210628
  Transmission Date: 20210717
  Serious: Yes (Hospitalization)
  Sender: FDA-Public Use
  Company Number: CA-TEVA-2020-CA-1801693

PATIENT
  Age: 58 Year
  Sex: Female
  Weight: 69 kg

DRUGS (24)
  1. CANDESARTAN CILEXETIL. [Concomitant]
     Active Substance: CANDESARTAN CILEXETIL
  2. JARDIANCE [Concomitant]
     Active Substance: EMPAGLIFLOZIN
  3. PIPERACILLIN SODIUM W/TAZOBACTAM SODIUM POWDER FOR INJECTION [Suspect]
     Active Substance: PIPERACILLIN SODIUM\TAZOBACTAM SODIUM
     Indication: INFECTION
     Route: 042
  4. PREGABALIN. [Concomitant]
     Active Substance: PREGABALIN
  5. BRILINTA [Concomitant]
     Active Substance: TICAGRELOR
  6. TEVA?CEPHALEXIN [Suspect]
     Active Substance: CEPHALEXIN
     Indication: INFECTION
     Route: 048
  7. APO?ARIPIPRAZOLE [Suspect]
     Active Substance: ARIPIPRAZOLE
     Indication: DEPRESSION
     Route: 048
  8. DENOSUMAB [Concomitant]
     Active Substance: DENOSUMAB
  9. AMITRIPTYLINE [Concomitant]
     Active Substance: AMITRIPTYLINE
  10. NITROGLYCERIN. [Concomitant]
     Active Substance: NITROGLYCERIN
  11. RABEPRAZOLE [Concomitant]
     Active Substance: RABEPRAZOLE
  12. CHOLECALCIFEROL [Concomitant]
     Active Substance: CHOLECALCIFEROL
  13. CYANOCOBALAMIN. [Concomitant]
     Active Substance: CYANOCOBALAMIN
  14. MYRBETRIQ [Concomitant]
     Active Substance: MIRABEGRON
  15. ROSUVASTATIN. [Concomitant]
     Active Substance: ROSUVASTATIN
  16. ASAPHEN [Concomitant]
     Active Substance: ASPIRIN
  17. ESTRADIOL. [Concomitant]
     Active Substance: ESTRADIOL
  18. HYDROMORPHONE [Concomitant]
     Active Substance: HYDROMORPHONE
  19. PIPERACILLIN AND TAZOBACTAM [Concomitant]
     Active Substance: PIPERACILLIN SODIUM\TAZOBACTAM SODIUM
  20. AMLODIPINE [Concomitant]
     Active Substance: AMLODIPINE BESYLATE
  21. ARIPIPRAZOLE. [Concomitant]
     Active Substance: ARIPIPRAZOLE
  22. DULOXETINE. [Concomitant]
     Active Substance: DULOXETINE
  23. EZETIMIBE. [Concomitant]
     Active Substance: EZETIMIBE
  24. INSULIN [Concomitant]
     Active Substance: INSULIN NOS

REACTIONS (5)
  - Toxic epidermal necrolysis [Recovering/Resolving]
  - Pneumonitis [Recovering/Resolving]
  - Stevens-Johnson syndrome [Recovering/Resolving]
  - Pulmonary oedema [Recovering/Resolving]
  - Hepatitis [Recovering/Resolving]
